FAERS Safety Report 20064854 (Version 2)
Quarter: 2021Q4

REPORT INFORMATION
  Report Type: Report from Study
  Country: PR (occurrence: PR)
  Receive Date: 20211112
  Receipt Date: 20211209
  Transmission Date: 20220303
  Serious: Yes (Hospitalization)
  Sender: FDA-Public Use
  Company Number: PR-ABBVIE-21K-131-4155404-00

PATIENT
  Age: 72 Year
  Sex: Female
  Weight: 97.610 kg

DRUGS (2)
  1. VENCLEXTA [Suspect]
     Active Substance: VENETOCLAX
     Indication: Acute myeloid leukaemia
     Route: 048
     Dates: start: 20210801
  2. VENCLEXTA [Suspect]
     Active Substance: VENETOCLAX
     Route: 048

REACTIONS (1)
  - Herpes zoster [Unknown]

NARRATIVE: CASE EVENT DATE: 20210101
